FAERS Safety Report 16334466 (Version 3)
Quarter: 2019Q2

REPORT INFORMATION
  Report Type: Spontaneous
  Country: IT (occurrence: IT)
  Receive Date: 20190520
  Receipt Date: 20190528
  Transmission Date: 20190711
  Serious: Yes (Life-Threatening, Hospitalization, Other)
  Sender: FDA-Public Use
  Company Number: PHHY2019IT103181

PATIENT
  Sex: Male

DRUGS (1)
  1. IMATINIB. [Suspect]
     Active Substance: IMATINIB MESYLATE
     Indication: GASTROINTESTINAL STROMAL TUMOUR
     Route: 065

REACTIONS (7)
  - Posture abnormal [Recovering/Resolving]
  - Atonic seizures [Unknown]
  - Neuromyopathy [Unknown]
  - Respiratory failure [Recovered/Resolved]
  - Eyelid ptosis [Recovering/Resolving]
  - Dropped head syndrome [Unknown]
  - Dysphagia [Recovering/Resolving]
